FAERS Safety Report 8428484-2 (Version None)
Quarter: 2012Q2

REPORT INFORMATION
  Report Type: 
  Country: None (occurrence: None)
  Receive Date: 20120612
  Receipt Date: 20120612
  Transmission Date: 20120825
  Serious: No
  Sender: FDA-Public Use
  Company Number: US-PFIZER INC-2012135085

PATIENT

DRUGS (1)
  1. LIPITOR [Suspect]
     Dosage: 10 MG, UNK
     Dates: start: 20120428

REACTIONS (4)
  - PAIN IN EXTREMITY [None]
  - BACK PAIN [None]
  - MUSCULAR WEAKNESS [None]
  - HEADACHE [None]
